FAERS Safety Report 5874388-9 (Version None)
Quarter: 2008Q3

REPORT INFORMATION
  Report Type: 
  Country: None (occurrence: None)
  Receive Date: 20080908
  Receipt Date: 20080825
  Transmission Date: 20090109
  Serious: Yes (Hospitalization)
  Sender: FDA-Public Use
  Company Number: US-PFIZER INC-2008070615

PATIENT
  Sex: Female
  Weight: 103 kg

DRUGS (5)
  1. CP-945,598 [Suspect]
     Indication: WEIGHT DECREASED
     Dosage: DAILY DOSE:20MG
     Route: 048
     Dates: start: 20070723
  2. LYRICA [Suspect]
     Indication: MUSCLE SPASMS
  3. BACLOFEN [Concomitant]
     Indication: MUSCLE SPASMS
     Route: 048
  4. NUVARING [Concomitant]
     Indication: CONTRACEPTION
     Dosage: TEXT:1 UNIT
  5. TAMIFLU [Concomitant]
     Indication: INFLUENZA

REACTIONS (2)
  - MUSCULAR WEAKNESS [None]
  - PARAESTHESIA [None]
